FAERS Safety Report 7379264-0 (Version None)
Quarter: 2011Q1

REPORT INFORMATION
  Report Type: 
  Country: None (occurrence: None)
  Receive Date: 20110328
  Receipt Date: 20110321
  Transmission Date: 20110831
  Serious: Yes (Other)
  Sender: FDA-Public Use
  Company Number: US-BRISTOL-MYERS SQUIBB COMPANY-15622178

PATIENT
  Age: 62 Year
  Sex: Female
  Weight: 100 kg

DRUGS (2)
  1. GLUCOVANCE [Suspect]
  2. ATENOLOL [Concomitant]

REACTIONS (5)
  - OROPHARYNGEAL PAIN [None]
  - DYSPNOEA [None]
  - RASH [None]
  - PRURITUS [None]
  - SWELLING [None]
